FAERS Safety Report 4555495-X (Version None)
Quarter: 2005Q1

REPORT INFORMATION
  Report Type: 
  Country: None (occurrence: None)
  Receive Date: 20050119
  Receipt Date: 20040511
  Transmission Date: 20050727
  Serious: Yes (Hospitalization)
  Sender: FDA-Public Use
  Company Number: JP-SOLVAY-00304001335

PATIENT
  Age: 276 Month
  Sex: Female
  Weight: 54 kg

DRUGS (17)
  1. AMOXAN [Concomitant]
     Indication: DEPRESSION
     Dosage: DAILY DOSE: 40 MILLIGRAM(S)
     Route: 048
     Dates: start: 20021128, end: 20021204
  2. AMOXAN [Concomitant]
     Dosage: DAILY DOSE: 70 MILLIGRAM(S)
     Route: 048
     Dates: start: 20021205, end: 20021216
  3. AMOXAN [Concomitant]
     Dosage: DAILY DOSE: 100 MILLIGRAM(S)
     Route: 048
     Dates: start: 20021217, end: 20030122
  4. AMOXAN [Concomitant]
     Dosage: DAILY DOSE: 120 MILLIGRAM(S)
     Route: 048
     Dates: start: 20030123, end: 20030915
  5. AMOXAN [Concomitant]
     Dosage: DAILY DOSE: 150 MILLIGRAM(S)
     Route: 048
     Dates: start: 20030916, end: 20040211
  6. AMOXAN [Concomitant]
     Dosage: DAILY DOSE: 200 MILLIGRAM(S)
     Route: 048
     Dates: start: 20040212, end: 20040310
  7. AMOXAN [Concomitant]
     Dosage: DAILY DOSE: 100 MILLIGRAM(S)
     Route: 048
     Dates: start: 20040311, end: 20040315
  8. DEPROMEL 25 [Suspect]
     Indication: DEPRESSION
     Dosage: DAILY DOSE: 150 MG. FREQUENCY:UNKNOWN
     Route: 048
     Dates: start: 20040311, end: 20040315
  9. DEPROMEL 25 [Suspect]
     Dosage: DAILY DOSE: 300 MG. FREQUENCY:UNKNOWN
     Route: 048
     Dates: start: 20040316, end: 20040322
  10. DEPROMEL 25 [Suspect]
     Dosage: DAILY DOSE: 50 MILLIGRAM(S)
     Route: 048
     Dates: start: 20040323, end: 20040325
  11. DESYREL [Concomitant]
     Indication: DEPRESSION
     Dosage: DAILY DOSE: 125 MILLIGRAM(S)
     Route: 048
     Dates: start: 20040214, end: 20040225
  12. DESYREL [Concomitant]
     Dosage: DAILY DOSE: 150 MILLIGRAM(S)
     Route: 048
     Dates: start: 20040226
  13. THYRADIN S [Concomitant]
     Indication: DEPRESSION
     Dosage: DAILY DOSE: 50 MG. FREQUENCY:UNKNOWN
     Route: 048
     Dates: start: 20040205, end: 20040301
  14. THYRADIN S [Concomitant]
     Dosage: DAILY DOSE: 100 MILLIGRAM(S)
     Route: 048
     Dates: start: 20040302, end: 20040317
  15. LIMAS [Concomitant]
     Indication: ILL-DEFINED DISORDER
     Dosage: DAILY DOSE: 800 MILLIGRAM(S)
     Route: 048
     Dates: start: 20040309, end: 20040318
  16. LENDORMIN [Concomitant]
     Indication: SLEEP DISORDER
     Dosage: DAILY DOSE: .25 MILLIGRAM(S)
     Route: 048
     Dates: start: 20021128, end: 20030804
  17. LENDORMIN [Concomitant]
     Dosage: DAILY DOSE: .5 MILLIGRAM(S)
     Route: 048
     Dates: start: 20030805

REACTIONS (2)
  - BLOOD CREATINE PHOSPHOKINASE INCREASED [None]
  - PYREXIA [None]
